FAERS Safety Report 12246120 (Version 3)
Quarter: 2016Q2

REPORT INFORMATION
  Report Type: Report from Study
  Country: ES (occurrence: ES)
  Receive Date: 20160407
  Receipt Date: 20160502
  Transmission Date: 20160815
  Serious: Yes (Hospitalization)
  Sender: FDA-Public Use
  Company Number: ES-SA-2016SA064275

PATIENT
  Age: 66 Year
  Sex: Female
  Weight: 51.5 kg

DRUGS (15)
  1. OXALIPLATIN. [Suspect]
     Active Substance: OXALIPLATIN
     Indication: RECTAL CANCER
     Dosage: EVERY 2 WEEK?95.55
     Route: 042
     Dates: start: 20160126, end: 20160126
  2. IMIDAPRIL [Concomitant]
     Active Substance: IMIDAPRIL
     Indication: HYPERTENSION
     Route: 048
     Dates: start: 20160129
  3. AFLIBERCEPT [Suspect]
     Active Substance: AFLIBERCEPT
     Indication: RECTAL CANCER
     Dosage: EVERY 2 WEEK?217.20
     Route: 042
     Dates: start: 20160126, end: 20160126
  4. AFLIBERCEPT [Suspect]
     Active Substance: AFLIBERCEPT
     Indication: RECTAL CANCER
     Dosage: EVERY 2 WEEK?217.20
     Route: 042
     Dates: start: 20151110, end: 20151110
  5. CAPECITABINE. [Suspect]
     Active Substance: CAPECITABINE
     Indication: RECTAL CANCER
     Dosage: 825MG/M2?1300Q12H
     Route: 048
     Dates: start: 20160320, end: 20160320
  6. THERAPEUTIC RADIOPHARMACEUTICALS [Suspect]
     Active Substance: RADIATION THERAPY
     Indication: RECTAL CANCER
     Dosage: DOSE: 180CGY,
     Dates: start: 20160224, end: 20160224
  7. 5-FU [Suspect]
     Active Substance: FLUOROURACIL
     Indication: RECTAL CANCER
     Dosage: EVERY 2 WEEK?2822.4
     Route: 042
     Dates: start: 20151110, end: 20151110
  8. BARNIDIPINE [Concomitant]
     Active Substance: BARNIDIPINE
     Indication: HYPERTENSION
     Route: 048
     Dates: start: 20151209
  9. LEUCOVORIN. [Suspect]
     Active Substance: LEUCOVORIN
     Indication: RECTAL CANCER
     Dosage: EVERY 2 WEEK
  10. CAPECITABINE. [Suspect]
     Active Substance: CAPECITABINE
     Indication: RECTAL CANCER
     Dosage: 825MG/M2?1300Q12H
     Route: 048
     Dates: start: 20160224, end: 20160224
  11. THERAPEUTIC RADIOPHARMACEUTICALS [Suspect]
     Active Substance: RADIATION THERAPY
     Indication: RECTAL CANCER
     Dosage: DOSE: 180CGY,
     Dates: start: 20160326, end: 20160326
  12. 5-FU [Suspect]
     Active Substance: FLUOROURACIL
     Indication: RECTAL CANCER
     Dosage: EVERY 2 WEEK?470.4
     Route: 040
     Dates: start: 20151110, end: 20151110
  13. 5-FU [Suspect]
     Active Substance: FLUOROURACIL
     Indication: RECTAL CANCER
     Dosage: EVERY 2 WEEK?470.4
     Route: 040
     Dates: start: 20160126, end: 20160126
  14. OXALIPLATIN. [Suspect]
     Active Substance: OXALIPLATIN
     Indication: RECTAL CANCER
     Dosage: EVERY 2 WEEK?95.55
     Route: 042
     Dates: start: 20151110, end: 20151110
  15. 5-FU [Suspect]
     Active Substance: FLUOROURACIL
     Indication: RECTAL CANCER
     Dosage: EVERY 2 WEEK?2822.4
     Route: 042
     Dates: start: 20160126, end: 20160126

REACTIONS (1)
  - Atrial fibrillation [Recovered/Resolved]

NARRATIVE: CASE EVENT DATE: 20160327
